FAERS Safety Report 10208870 (Version 2)
Quarter: 2014Q2

REPORT INFORMATION
  Report Type: Report from Study
  Country: AR (occurrence: AR)
  Receive Date: 20140530
  Receipt Date: 20140530
  Transmission Date: 20141212
  Serious: Yes (Death, Other)
  Sender: FDA-Public Use
  Company Number: PHHY2014AR063485

PATIENT
  Sex: Male

DRUGS (1)
  1. AMN107 [Suspect]
     Dosage: 800 MG, QD
     Route: 048
     Dates: start: 20130215, end: 20130701

REACTIONS (4)
  - Chronic myeloid leukaemia [Fatal]
  - Cerebral artery occlusion [Unknown]
  - Blindness [Unknown]
  - Cardio-respiratory arrest [Unknown]
